FAERS Safety Report 18582210 (Version 1)
Quarter: 2020Q4

REPORT INFORMATION
  Report Type: Spontaneous
  Country: US (occurrence: US)
  Receive Date: 20201204
  Receipt Date: 20201204
  Transmission Date: 20210114
  Serious: Yes (Life-Threatening, Hospitalization, Disabling)
  Sender: FDA-Public Use
  Company Number: None

PATIENT
  Age: 80 Year
  Sex: Female
  Weight: 67.5 kg

DRUGS (12)
  1. DUPIXENT [Suspect]
     Active Substance: DUPILUMAB
     Indication: ECZEMA
     Dosage: ?          OTHER FREQUENCY:TWICE A MONTH;?
     Route: 058
     Dates: start: 20200723, end: 20201125
  2. DULERA [Concomitant]
     Active Substance: FORMOTEROL FUMARATE DIHYDRATE\MOMETASONE FUROATE
  3. XOPENEX [Concomitant]
     Active Substance: LEVALBUTEROL HYDROCHLORIDE
  4. PROTONIX [Concomitant]
     Active Substance: PANTOPRAZOLE SODIUM
  5. ASPIRIN 81MG [Concomitant]
     Active Substance: ASPIRIN
  6. SYNTHROID [Concomitant]
     Active Substance: LEVOTHYROXINE SODIUM
  7. LORAZEPAM. [Concomitant]
     Active Substance: LORAZEPAM
  8. PLAVIX [Concomitant]
     Active Substance: CLOPIDOGREL BISULFATE
  9. LIPITOR [Concomitant]
     Active Substance: ATORVASTATIN CALCIUM
  10. OMNEPRAZOLE [Concomitant]
     Active Substance: OMEPRAZOLE
  11. ALLEGRA [Concomitant]
     Active Substance: FEXOFENADINE HYDROCHLORIDE
  12. DUPIXENT [Suspect]
     Active Substance: DUPILUMAB
     Indication: RASH
     Dosage: ?          OTHER FREQUENCY:TWICE A MONTH;?
     Route: 058
     Dates: start: 20200723, end: 20201125

REACTIONS (3)
  - Cerebrovascular accident [None]
  - Device connection issue [None]
  - Aphasia [None]

NARRATIVE: CASE EVENT DATE: 20201201
